FAERS Safety Report 7708071-1 (Version None)
Quarter: 2011Q3

REPORT INFORMATION
  Report Type: 
  Country: None (occurrence: None)
  Receive Date: 20110825
  Receipt Date: 20110819
  Transmission Date: 20111222
  Serious: Yes (Life-Threatening, Hospitalization, Other)
  Sender: FDA-Public Use
  Company Number: BR-BRISTOL-MYERS SQUIBB COMPANY-15845464

PATIENT
  Age: 51 Year
  Sex: Male
  Weight: 115 kg

DRUGS (8)
  1. SOLU-CORTEF [Suspect]
  2. FOLIC ACID [Concomitant]
  3. HYDROXOCOBALAMIN [Suspect]
     Indication: VITAMIN B12 DEFICIENCY
     Dosage: RUBRANOVA INJ5000MCG(TOTALLY 4 INJ)1DOSE 4TH INJ ON 03JUN2011 3DOSETOTAL(15000MCG) ALSO 30JUN11;
     Route: 030
     Dates: start: 20110501, end: 20110601
  4. EPINEPHRINE [Suspect]
     Indication: ANAPHYLACTIC SHOCK
  5. PHENERGAN [Suspect]
  6. CORTISONE ACETATE [Suspect]
  7. DIPROSPAN [Suspect]
  8. IRON POLYMALTOSE [Concomitant]

REACTIONS (4)
  - CARDIAC ARREST [None]
  - DRUG INEFFECTIVE [None]
  - LIVER INJURY [None]
  - ANAPHYLACTIC SHOCK [None]
